FAERS Safety Report 15739076 (Version 2)
Quarter: 2022Q1

REPORT INFORMATION
  Report Type: Spontaneous
  Country: CH (occurrence: CH)
  Receive Date: 20181219
  Receipt Date: 20220131
  Transmission Date: 20220423
  Serious: Yes (Other)
  Sender: FDA-Public Use
  Company Number: CH-SM-2018-14329

PATIENT
  Age: 32 Year
  Sex: Male

DRUGS (27)
  1. CIPROFLOXACIN [Suspect]
     Active Substance: CIPROFLOXACIN
     Route: 048
     Dates: start: 20181007, end: 20181008
  2. CIPROFLOXACIN [Suspect]
     Active Substance: CIPROFLOXACIN
     Route: 048
     Dates: start: 20181008, end: 20181114
  3. DEXAMETHASONE [Suspect]
     Active Substance: DEXAMETHASONE
     Route: 042
     Dates: start: 20181003, end: 20181009
  4. ENOXAPARIN SODIUM [Suspect]
     Active Substance: ENOXAPARIN SODIUM
     Route: 058
     Dates: start: 20180910, end: 20181031
  5. CILASTATIN SODIUM\IMIPENEM [Suspect]
     Active Substance: CILASTATIN SODIUM\IMIPENEM
     Route: 042
     Dates: start: 20181009, end: 20181114
  6. RIFAMPIN [Suspect]
     Active Substance: RIFAMPIN
     Route: 042
     Dates: start: 20181003, end: 20181019
  7. AMIKIN [Suspect]
     Active Substance: AMIKACIN SULFATE
     Route: 042
     Dates: start: 20181008, end: 20181114
  8. NEXIUM [Suspect]
     Active Substance: ESOMEPRAZOLE MAGNESIUM
     Route: 048
     Dates: start: 20180823, end: 20181128
  9. ISONIAZID [Suspect]
     Active Substance: ISONIAZID
     Route: 042
     Dates: start: 20181003, end: 20181017
  10. LAMIVUDINE [Suspect]
     Active Substance: LAMIVUDINE
     Route: 048
     Dates: start: 20181005
  11. ZYPREXA [Suspect]
     Active Substance: OLANZAPINE
     Route: 048
     Dates: start: 20180903
  12. DAFALGAN [Suspect]
     Active Substance: ACETAMINOPHEN
     Dosage: MAX 4X/J ; AS NECESSARY
     Route: 048
     Dates: start: 20180911, end: 20181104
  13. Temesta [Concomitant]
     Dosage: AS NECESSARY
  14. SODIUM PICOSULFATE [Concomitant]
     Active Substance: SODIUM PICOSULFATE
     Dates: start: 20180829, end: 20181128
  15. Prazine [Concomitant]
     Dosage: AS NECESSARY
     Dates: start: 20180829
  16. FIG FRUIT OIL\SORBITOL [Concomitant]
     Active Substance: FIG FRUIT OIL\SORBITOL
     Dosage: AS NECESSARY
     Dates: start: 20180902, end: 20181124
  17. TRAMADOL [Concomitant]
     Active Substance: TRAMADOL
     Dosage: AS NECESSARY
     Dates: start: 20180914, end: 20181120
  18. CHOLECALCIFEROL [Concomitant]
     Active Substance: CHOLECALCIFEROL
     Dates: start: 20180921
  19. EUTHYROX [Concomitant]
     Active Substance: LEVOTHYROXINE SODIUM
     Dates: start: 20180924, end: 20181126
  20. Synacthene [Concomitant]
     Dates: start: 20180928, end: 20180928
  21. AMOXICILLIN\CLAVULANIC ACID [Concomitant]
     Active Substance: AMOXICILLIN\CLAVULANIC ACID
     Dates: start: 20181003, end: 20181007
  22. ETHAMBUTOL HYDROCHLORIDE [Concomitant]
     Active Substance: ETHAMBUTOL HYDROCHLORIDE
     Dates: start: 20181003, end: 20181009
  23. GENTAMICIN SULFATE [Concomitant]
     Active Substance: GENTAMICIN SULFATE
     Dates: start: 20181003, end: 20181007
  24. METOCLOPRAMIDE HYDROCHLORIDE [Concomitant]
     Active Substance: METOCLOPRAMIDE HYDROCHLORIDE
     Dosage: AS NECESSARY
     Dates: start: 20181003
  25. PYRAZINAMIDE [Concomitant]
     Active Substance: PYRAZINAMIDE
     Dates: start: 20181003, end: 20181009
  26. VITAMIN B6 [Concomitant]
     Active Substance: PYRIDOXINE HYDROCHLORIDE
     Dates: start: 20181005, end: 20181022
  27. CIPROFLOXACIN [Concomitant]
     Active Substance: CIPROFLOXACIN
     Dates: start: 20181007, end: 20181114

REACTIONS (1)
  - Thrombocytopenia [Recovering/Resolving]

NARRATIVE: CASE EVENT DATE: 20181015
